FAERS Safety Report 5994112-9 (Version None)
Quarter: 2008Q4

REPORT INFORMATION
  Report Type: 
  Country: None (occurrence: None)
  Receive Date: 20081212
  Receipt Date: 20081203
  Transmission Date: 20090506
  Serious: Yes (Other)
  Sender: FDA-Public Use
  Company Number: US-JNJFOC-20081201608

PATIENT
  Sex: Female

DRUGS (2)
  1. REMICADE [Suspect]
     Indication: RHEUMATOID ARTHRITIS
     Route: 042
  2. ANTIBIOTICS [Concomitant]
     Indication: ACID FAST BACILLI INFECTION

REACTIONS (2)
  - IMPAIRED HEALING [None]
  - OPEN WOUND [None]
